FAERS Safety Report 10508097 (Version 1)
Quarter: 2014Q4

REPORT INFORMATION
  Report Type: Spontaneous
  Country: US (occurrence: None)
  Receive Date: 20141008
  Receipt Date: 20141008
  Transmission Date: 20150528
  Serious: Yes (Other)
  Sender: FDA-Public Use
  Company Number: None

PATIENT
  Age: 61 Year
  Sex: Female
  Weight: 68.95 kg

DRUGS (3)
  1. HYDROCODONE ACETAMINOPHEN [Suspect]
     Active Substance: ACETAMINOPHEN\HYDROCODONE BITARTRATE
     Indication: TOOTHACHE
     Dosage: 2 TABS, 4-6 XDAILY
     Route: 048
     Dates: start: 20140903, end: 20140908
  2. HYDROCODONE ACETAMINOPHEN [Suspect]
     Active Substance: ACETAMINOPHEN\HYDROCODONE BITARTRATE
     Indication: SINUS DISORDER
     Dosage: 2 TABS, 4-6 XDAILY
     Route: 048
     Dates: start: 20140903, end: 20140908
  3. HYDROCODONE ACETAMINOPHEN [Suspect]
     Active Substance: ACETAMINOPHEN\HYDROCODONE BITARTRATE
     Indication: EAR INFECTION
     Dosage: 2 TABS, 4-6 XDAILY
     Route: 048
     Dates: start: 20140903, end: 20140908

REACTIONS (8)
  - Sleep disorder [None]
  - Back pain [None]
  - Constipation [None]
  - Decreased appetite [None]
  - Abdominal pain upper [None]
  - Anger [None]
  - Vomiting [None]
  - Nausea [None]

NARRATIVE: CASE EVENT DATE: 20140907
